FAERS Safety Report 23337986 (Version 1)
Quarter: 2023Q4

REPORT INFORMATION
  Report Type: Spontaneous
  Country: ES (occurrence: ES)
  Receive Date: 20231226
  Receipt Date: 20231226
  Transmission Date: 20240110
  Serious: Yes (Other)
  Sender: FDA-Public Use
  Company Number: None

PATIENT
  Age: 47 Year
  Sex: Female
  Weight: 71.9 kg

DRUGS (8)
  1. CARBOPLATIN [Suspect]
     Active Substance: CARBOPLATIN
     Indication: Ovarian cancer
     Dosage: UNK
     Route: 042
     Dates: start: 20230403
  2. CODEINE PHOSPHATE [Concomitant]
     Active Substance: CODEINE PHOSPHATE
     Indication: Pain
     Dosage: 28.7 MILLIGRAM
     Route: 065
     Dates: start: 20230605, end: 20230902
  3. FAMOTIDINE [Concomitant]
     Active Substance: FAMOTIDINE
     Indication: Prophylaxis against gastrointestinal ulcer
     Dosage: UNK
     Route: 065
     Dates: start: 20230821
  4. GEMCITABINE [Concomitant]
     Active Substance: GEMCITABINE
     Indication: Ovarian cancer
     Dosage: 1000 MG/M2 DAYS 1 IN 8 CYCLE
     Route: 058
     Dates: start: 20231017
  5. INACID DAP [Concomitant]
     Indication: Analgesic therapy
     Dosage: 25 MG PER 8 HOURS
     Route: 048
     Dates: start: 20230329
  6. DOMPERIDONE [Concomitant]
     Active Substance: DOMPERIDONE
     Indication: Vomiting
     Dosage: UNK
     Route: 048
     Dates: start: 20230331
  7. PACLITAXEL [Concomitant]
     Active Substance: PACLITAXEL
     Indication: Ovarian cancer
     Dosage: 175 MG/M2 EVERY 21 DAY
     Route: 042
     Dates: start: 20230403
  8. FERROUS SULFATE [Concomitant]
     Active Substance: FERROUS SULFATE
     Indication: Anaemia
     Dosage: 1 TABLET, EVERY 8 HOURS
     Route: 048
     Dates: start: 20230515

REACTIONS (4)
  - Rash [Recovered/Resolved]
  - Transfusion-associated dyspnoea [Recovered/Resolved]
  - Vomiting [Recovered/Resolved]
  - Nausea [Recovered/Resolved]

NARRATIVE: CASE EVENT DATE: 20231108
